FAERS Safety Report 10183791 (Version 1)
Quarter: 2014Q2

REPORT INFORMATION
  Report Type: Report from Study
  Country: DE (occurrence: DE)
  Receive Date: 20140520
  Receipt Date: 20140520
  Transmission Date: 20141212
  Serious: Yes (Hospitalization)
  Sender: FDA-Public Use
  Company Number: DE-AMGEN INC.-DEUCT2014036646

PATIENT
  Age: 50 Year
  Sex: Female
  Weight: 71 kg

DRUGS (7)
  1. ETANERCEPT [Suspect]
     Indication: PRODUCT USED FOR UNKNOWN INDICATION
     Dosage: 25 MG, 2 TIMES/WK
     Route: 065
     Dates: start: 20080102, end: 20140129
  2. NITRO                              /00003201/ [Concomitant]
     Indication: RAYNAUD^S PHENOMENON
     Dosage: UNK, AS NECESSARY
     Route: 061
     Dates: start: 20130107
  3. PREDNITOP                          /00016201/ [Concomitant]
     Indication: NEURODERMATITIS
     Dosage: UNK, AS NECESSARY
     Route: 061
     Dates: start: 20130322
  4. ARCOXIA [Concomitant]
     Indication: SPINAL COLUMN INJURY
     Dosage: 90 MG, AS NEEDED, FOR SPONDYLOARTHROPATHY
     Route: 048
     Dates: start: 20130208, end: 20140119
  5. ARCOXIA [Concomitant]
     Indication: SPONDYLOARTHROPATHY
     Dosage: 90 MG, 1X/DAY, FOR COCCYX BRUISE
     Route: 048
     Dates: start: 20140120, end: 20140203
  6. ARCOXIA [Concomitant]
     Dosage: 90 MG, AS NEEDED, FOR SPONDYLOARTHROPATHY
     Route: 048
     Dates: start: 20140204
  7. GYNOFLOR                           /07827101/ [Concomitant]
     Indication: SMEAR CERVIX ABNORMAL
     Dosage: 50 MG, 2 TIMES/WK
     Route: 048
     Dates: start: 20130410

REACTIONS (1)
  - Cough [Recovering/Resolving]
